FAERS Safety Report 14162456 (Version 1)
Quarter: 2017Q4

REPORT INFORMATION
  Report Type: Spontaneous
  Country: AT (occurrence: AT)
  Receive Date: 20171106
  Receipt Date: 20171106
  Transmission Date: 20180321
  Serious: Yes (Death, Life-Threatening, Hospitalization)
  Sender: FDA-Public Use
  Company Number: AT-TEVA-822441ISR

PATIENT
  Age: 73 Year
  Sex: Male

DRUGS (23)
  1. AZILECT [Suspect]
     Active Substance: RASAGILINE MESYLATE
     Dosage: ONE IN THE MORNING
     Route: 065
     Dates: start: 20160125, end: 20160130
  2. STALEVO [Suspect]
     Active Substance: CARBIDOPA\ENTACAPONE\LEVODOPA
     Dosage: ONE IN THE MORNING
     Route: 065
     Dates: start: 20160125, end: 20160128
  3. STALEVO [Suspect]
     Active Substance: CARBIDOPA\ENTACAPONE\LEVODOPA
     Dosage: ONE IN THE MORNING, ONE AT NOON
     Dates: start: 20160212
  4. LOVENOX [Concomitant]
     Active Substance: ENOXAPARIN SODIUM
     Dosage: 1 DAILY
     Dates: start: 20160125
  5. EPOETIN THETA [Concomitant]
     Active Substance: ERYTHROPOIETIN
     Dosage: 1 WEEKLY
  6. CEFTRIAXONE SODIUM. [Concomitant]
     Active Substance: CEFTRIAXONE SODIUM
     Dosage: 2 G IN 200 ML, 1 DAILY
  7. CIPRALEX [Suspect]
     Active Substance: ESCITALOPRAM OXALATE
     Dosage: TWO IN THE MORNING
     Route: 065
     Dates: start: 20160125, end: 20160130
  8. SEDACORON 200MG [Concomitant]
     Dosage: HALF IN THE MORNING
  9. AQUAPHORIL [Concomitant]
     Active Substance: XIPAMIDE
     Dosage: HALF IN THE MORNING
  10. TORASEMIDE [Concomitant]
     Active Substance: TORSEMIDE
     Dosage: ONE IN THE MORNING
  11. CIPRALEX [Suspect]
     Active Substance: ESCITALOPRAM OXALATE
     Dosage: ONE IN THE MORNING
     Dates: start: 20160212
  12. SEROQUEL [Suspect]
     Active Substance: QUETIAPINE FUMARATE
     Dosage: AS NEEDED
     Route: 065
     Dates: start: 20160125
  13. MADOPAR 50MG/12.5MG [Suspect]
     Active Substance: BENSERAZIDE HYDROCHLORIDE\LEVODOPA
     Dosage: ONE IN THE MORNING, ONE AT NOON, ONE IN THE EVENING
     Route: 065
     Dates: start: 20160125
  14. STALEVO [Suspect]
     Active Substance: CARBIDOPA\ENTACAPONE\LEVODOPA
     Route: 065
     Dates: start: 20160212
  15. ELOMEL [Concomitant]
     Dosage: 1 DAILY
     Dates: start: 20160129, end: 20160130
  16. OPTINEM [Concomitant]
     Active Substance: MEROPENEM
     Dates: start: 20160129, end: 20160210
  17. DANCOR [Concomitant]
     Active Substance: NICORANDIL
     Dosage: ONE IN THE MORNING, ONE IN THE EVENING
  18. TRITTICO 150MG [Suspect]
     Active Substance: TRAZODONE HYDROCHLORIDE
     Dosage: HALF AT NIGHT
     Route: 065
     Dates: start: 20160125, end: 20160130
  19. THROMBO ASS 100MG [Concomitant]
     Dosage: ONE AT NOON
     Dates: start: 20160129
  20. LASIX [Concomitant]
     Active Substance: FUROSEMIDE
     Dates: start: 20160129
  21. SPIROBENE [Concomitant]
     Active Substance: SPIRONOLACTONE
     Dosage: HALF AT NOON
     Dates: start: 20160129
  22. PANTOLOC [Concomitant]
     Active Substance: PANTOPRAZOLE SODIUM
     Dosage: TWO IN THE MORNING
  23. ISOPHANE INSULIN [Concomitant]
     Active Substance: INSULIN NOS
     Dosage: 6IE-0-0 (INTERNATIONAL UNIT)

REACTIONS (10)
  - Cardiac disorder [Fatal]
  - Weight decreased [Fatal]
  - Coronary artery disease [Fatal]
  - Renal impairment [Fatal]
  - Pneumonia [Fatal]
  - Condition aggravated [Fatal]
  - Atrial fibrillation [Fatal]
  - Fatigue [Fatal]
  - Oedema peripheral [Fatal]
  - Dehydration [Fatal]

NARRATIVE: CASE EVENT DATE: 20160125
